FAERS Safety Report 4832530-2 (Version None)
Quarter: 2005Q4

REPORT INFORMATION
  Report Type: 
  Country: None (occurrence: None)
  Receive Date: 20051117
  Receipt Date: 20051109
  Transmission Date: 20060501
  Serious: Yes (Hospitalization, Other)
  Sender: FDA-Public Use
  Company Number: 163-20785-05100315

PATIENT
  Age: 59 Year
  Sex: Female
  Weight: 104.7 kg

DRUGS (7)
  1. THALOMID [Suspect]
     Indication: SARCOMA
     Dosage: 200MG DAILY ON DAYS 7 TO 21, 28 TO 42 AND 84 TO 98; ORAL
     Route: 048
     Dates: start: 20050926, end: 20051010
  2. MESNA [Suspect]
     Indication: SARCOMA
     Dosage: 2500 MG/M2/DAY FOR 4 DAYS, STARTING ON DAYS 1, 22, AND 43;
     Dates: start: 20050920
  3. DOXORUBICIN HCL [Suspect]
     Indication: SARCOMA
     Dosage: 20 MG/M2/DAY FOR 3 DAYS, STARTING ON DAYS 1, 22 AND 32,
     Dates: start: 20050920
  4. IFOSFAMIDE [Suspect]
     Indication: SARCOMA
     Dosage: 2500MG/M2/DAY FOR 3 DAYS, STARTING ON DAYS 1, 22 AND 43'
     Dates: start: 20050920
  5. DACARBAZINE [Suspect]
     Indication: SARCOMA
     Dosage: 225 MG/M2/DAY FOR 3 DAYS, STARTING ON DAYS 1, 22 AND 43;
     Dates: start: 20050920
  6. RADIATION THERAPY [Suspect]
     Indication: SARCOMA
  7. NEULASTA [Concomitant]

REACTIONS (12)
  - CATHETER RELATED COMPLICATION [None]
  - DUODENAL ULCER [None]
  - GASTROINTESTINAL HAEMORRHAGE [None]
  - LYMPHOPENIA [None]
  - NEUTROPHIL COUNT DECREASED [None]
  - OESOPHAGITIS ULCERATIVE [None]
  - PLATELET COUNT DECREASED [None]
  - PULMONARY EMBOLISM [None]
  - SMALL INTESTINAL HAEMORRHAGE [None]
  - STOMATITIS [None]
  - THROMBOSIS [None]
  - WHITE BLOOD CELL COUNT DECREASED [None]
